FAERS Safety Report 10250688 (Version 1)
Quarter: 2014Q2

REPORT INFORMATION
  Report Type: Spontaneous
  Country: IT (occurrence: DE)
  Receive Date: 20140620
  Receipt Date: 20140620
  Transmission Date: 20141212
  Serious: Yes (Hospitalization)
  Sender: FDA-Public Use
  Company Number: IT-WATSON-2014-13027

PATIENT
  Age: 88 Year
  Sex: Female

DRUGS (3)
  1. LAMOTRIGINE (UNKNOWN) [Suspect]
     Indication: GENERALISED TONIC-CLONIC SEIZURE
     Dosage: 75 MG, DAILY
     Route: 048
     Dates: start: 201402, end: 20140512
  2. ASS [Concomitant]
     Indication: PRODUCT USED FOR UNKNOWN INDICATION
     Dosage: 100 MG, DAILY
     Route: 048
     Dates: start: 201402
  3. METOPROLOL [Concomitant]
     Indication: PRODUCT USED FOR UNKNOWN INDICATION
     Dosage: 50 MG, DAILY
     Route: 065
     Dates: start: 201402

REACTIONS (2)
  - Rash maculo-papular [Recovering/Resolving]
  - Pruritus [Recovering/Resolving]
